FAERS Safety Report 15094004 (Version 7)
Quarter: 2019Q1

REPORT INFORMATION
  Report Type: Report from Study
  Country: US (occurrence: US)
  Receive Date: 20180629
  Receipt Date: 20190207
  Transmission Date: 20190417
  Serious: No
  Sender: FDA-Public Use
  Company Number: PHEH2018US025513

PATIENT
  Sex: Female

DRUGS (4)
  1. COSENTYX [Suspect]
     Active Substance: SECUKINUMAB
     Indication: ANKYLOSING SPONDYLITIS
     Dosage: 150 MG, QMO
     Route: 058
  2. COSENTYX [Suspect]
     Active Substance: SECUKINUMAB
     Dosage: 150 MG, Q2W (1ST AND 15TH)
     Route: 058
  3. COSENTYX [Suspect]
     Active Substance: SECUKINUMAB
     Indication: PSORIASIS
     Dosage: 300 MG, QMO
     Route: 058
  4. COSENTYX [Suspect]
     Active Substance: SECUKINUMAB
     Dosage: 300 MG, QMO
     Route: 058

REACTIONS (9)
  - Pain [Unknown]
  - Nasopharyngitis [Recovering/Resolving]
  - Avulsion fracture [Unknown]
  - Therapeutic response shortened [Unknown]
  - Sinus disorder [Recovering/Resolving]
  - Gastrooesophageal reflux disease [Unknown]
  - Sneezing [Unknown]
  - Movement disorder [Unknown]
  - Ear discomfort [Recovering/Resolving]
